FAERS Safety Report 4775440-1 (Version None)
Quarter: 2005Q3

REPORT INFORMATION
  Report Type: 
  Country: None (occurrence: None)
  Receive Date: 20050921
  Receipt Date: 20050921
  Transmission Date: 20060218
  Serious: Yes (Hospitalization)
  Sender: FDA-Public Use
  Company Number: None

PATIENT
  Sex: Male

DRUGS (7)
  1. TRAMADOL HCL [Suspect]
     Indication: PAIN
     Dosage: 1-2 TABLETS Q 4-6 HR PRN PO
     Route: 048
  2. CILOSTAZOL [Concomitant]
  3. TRAZODONE [Concomitant]
  4. OMEPRAZOLE [Concomitant]
  5. ENOXAPARIN SODIUM [Concomitant]
  6. GLIPIZIDE [Concomitant]
  7. METOPROLOL [Concomitant]

REACTIONS (1)
  - CONFUSIONAL STATE [None]
